FAERS Safety Report 11611445 (Version 1)
Quarter: 2015Q4

REPORT INFORMATION
  Report Type: Spontaneous
  Country: US (occurrence: US)
  Receive Date: 20151008
  Receipt Date: 20151008
  Transmission Date: 20160304
  Serious: No
  Sender: FDA-Public Use
  Company Number: US-BIOGENIDEC-2015BI135877

PATIENT
  Sex: Female

DRUGS (2)
  1. KEPPRA [Concomitant]
     Active Substance: LEVETIRACETAM
     Indication: SEIZURE
  2. TECFIDERA [Suspect]
     Active Substance: DIMETHYL FUMARATE
     Indication: MULTIPLE SCLEROSIS

REACTIONS (4)
  - Multiple sclerosis [Not Recovered/Not Resolved]
  - Somnolence [Not Recovered/Not Resolved]
  - Abdominal distension [Not Recovered/Not Resolved]
  - Asthenia [Not Recovered/Not Resolved]
